FAERS Safety Report 6247783-6 (Version None)
Quarter: 2009Q2

REPORT INFORMATION
  Report Type: 
  Country: None (occurrence: None)
  Receive Date: 20090626
  Receipt Date: 20090615
  Transmission Date: 20091009
  Serious: Yes (Hospitalization)
  Sender: FDA-Public Use
  Company Number: PL-NOVOPROD-288372

PATIENT
  Age: 53 Year
  Sex: Male
  Weight: 90 kg

DRUGS (5)
  1. NOVORAPID [Suspect]
     Indication: INSULIN-REQUIRING TYPE 2 DIABETES MELLITUS
     Dosage: 56 IU, QD
     Route: 058
     Dates: start: 20080826
  2. INSULATARD HM [Suspect]
     Indication: INSULIN-REQUIRING TYPE 2 DIABETES MELLITUS
     Dosage: 28 IU, QD
     Route: 058
     Dates: start: 20050223
  3. SIMVASTEROL [Concomitant]
     Dosage: 20 MG, QD
     Route: 048
     Dates: start: 20080421
  4. HYGROTON [Concomitant]
     Dosage: 50 MG, QD
     Route: 048
     Dates: start: 20080421
  5. ASPIRIN [Concomitant]
     Dosage: 75 MG, QD
     Route: 048
     Dates: start: 20090305

REACTIONS (3)
  - BACTERIAL INFECTION [None]
  - DIABETIC FOOT [None]
  - TOE AMPUTATION [None]
